FAERS Safety Report 24001132 (Version 1)
Quarter: 2024Q2

REPORT INFORMATION
  Report Type: Spontaneous
  Country: US (occurrence: None)
  Receive Date: 20240621
  Receipt Date: 20240621
  Transmission Date: 20240716
  Serious: No
  Sender: FDA-Public Use
  Company Number: None

PATIENT
  Age: 55 Year
  Sex: Male
  Weight: 74.8 kg

DRUGS (3)
  1. ORGOVYX [Suspect]
     Active Substance: RELUGOLIX
     Indication: Prostate cancer
     Dosage: FREQUENCY : DAILY;?
     Route: 048
     Dates: start: 20240201, end: 20240617
  2. XTANDI [Concomitant]
     Active Substance: ENZALUTAMIDE
     Dates: start: 20231101, end: 20240617
  3. CARBOPLATIN [Concomitant]
     Active Substance: CARBOPLATIN
     Dates: start: 20240528, end: 20240617

REACTIONS (2)
  - Fatigue [None]
  - Malaise [None]

NARRATIVE: CASE EVENT DATE: 20240617
